FAERS Safety Report 21350905 (Version 1)
Quarter: 2022Q3

REPORT INFORMATION
  Report Type: Spontaneous
  Country: TR (occurrence: TR)
  Receive Date: 20220919
  Receipt Date: 20220919
  Transmission Date: 20221027
  Serious: Yes (Other)
  Sender: FDA-Public Use
  Company Number: TR-GLAXOSMITHKLINE-TR2022GSK132203

PATIENT

DRUGS (8)
  1. LAMOTRIGINE [Suspect]
     Active Substance: LAMOTRIGINE
     Indication: Seizure
     Dosage: UNK
  2. LEVETIRACETAM [Suspect]
     Active Substance: LEVETIRACETAM
     Indication: Seizure
     Dosage: UNK
  3. PYRIDOXINE [Suspect]
     Active Substance: PYRIDOXINE
     Indication: Seizure
     Dosage: UNK
  4. VALPROATE [Suspect]
     Active Substance: VALPROIC ACID
     Indication: Seizure
     Dosage: UNK
  5. CLOBAZAM [Suspect]
     Active Substance: CLOBAZAM
     Indication: Seizure
     Dosage: UNK
  6. CLONAZEPAM [Suspect]
     Active Substance: CLONAZEPAM
     Indication: Seizure
     Dosage: UNK
  7. SULTHIAME [Suspect]
     Active Substance: SULTHIAME
     Indication: Seizure
     Dosage: UNK
  8. LACOSAMIDE [Suspect]
     Active Substance: LACOSAMIDE
     Indication: Seizure
     Dosage: UNK

REACTIONS (3)
  - Seizure [Recovered/Resolved]
  - Pathogen resistance [Unknown]
  - Drug ineffective [Unknown]
